FAERS Safety Report 7480820-X (Version None)
Quarter: 2011Q2

REPORT INFORMATION
  Report Type: 
  Country: None (occurrence: None)
  Receive Date: 20110506
  Receipt Date: 20110421
  Transmission Date: 20111010
  Serious: Yes (Other)
  Sender: FDA-Public Use
  Company Number: 2010CP000327

PATIENT
  Age: 11 Year
  Sex: Male

DRUGS (4)
  1. DIPYRONE INJ [Concomitant]
  2. ACETAMINOPHEN [Suspect]
     Indication: INFLUENZA LIKE ILLNESS
     Dosage: 20 ML, Q6H; IV
     Route: 042
     Dates: start: 20101126, end: 20101126
  3. QUININE SULFATE [Suspect]
  4. HYDROSOL POLYVITAMINE (MULTIPLE VITAMINS) [Concomitant]

REACTIONS (3)
  - CHILLS [None]
  - INFUSION RELATED REACTION [None]
  - TONIC CONVULSION [None]
